FAERS Safety Report 8125474-4 (Version None)
Quarter: 2012Q1

REPORT INFORMATION
  Report Type: 
  Country: None (occurrence: None)
  Receive Date: 20120209
  Receipt Date: 20120206
  Transmission Date: 20120608
  Serious: Yes (Other)
  Sender: FDA-Public Use
  Company Number: US-PFIZER INC-2011166641

PATIENT
  Sex: Male

DRUGS (5)
  1. THYROID TAB [Concomitant]
     Indication: HYPOTHYROIDISM
     Dosage: 150 MG, UNK
     Dates: start: 20080101
  2. LEVOXYL [Concomitant]
     Dosage: UNK
  3. CHANTIX [Suspect]
     Indication: SMOKING CESSATION THERAPY
     Dosage: UNK 1X/DAY (QD)
     Route: 048
     Dates: start: 20110601, end: 20110714
  4. FLOVENT [Concomitant]
     Indication: ASTHMA
     Dosage: 100 UG, UNK
     Dates: start: 20100101
  5. VENTOLIN [Concomitant]
     Indication: ASTHMA
     Dosage: UNK
     Dates: start: 20100101

REACTIONS (3)
  - DYSPNOEA [None]
  - ATRIAL FIBRILLATION [None]
  - STRESS [None]
